FAERS Safety Report 19719740 (Version 1)
Quarter: 2021Q3

REPORT INFORMATION
  Report Type: Spontaneous
  Country: DE (occurrence: DE)
  Receive Date: 20210818
  Receipt Date: 20210818
  Transmission Date: 20211014
  Serious: Yes (Hospitalization)
  Sender: FDA-Public Use
  Company Number: DE-MYLANLABS-2021M1051753

PATIENT
  Age: 77 Year
  Sex: Female

DRUGS (11)
  1. DEKRISTOL [Concomitant]
     Active Substance: CHOLECALCIFEROL
     Dosage: 1 DOSAGE FORM, QW (20000 IE / WOCHE, 1X, KAPSELN)
  2. ATORVASTATIN [Concomitant]
     Active Substance: ATORVASTATIN
     Dosage: 40 MILLIGRAM, QD (40 MG, 0?0?1?0)
  3. URAPIDIL [Concomitant]
     Active Substance: URAPIDIL
     Dosage: 90 MILLIGRAM, BID (90 MG, 1?0?1?0)
  4. INSPIOLTO RESPIMAT [Concomitant]
     Active Substance: OLODATEROL HYDROCHLORIDE\TIOTROPIUM BROMIDE MONOHYDRATE
     Dosage: UNK (2.5|2.5 MG, 2?0?0?0)
  5. BISOPROLOL [Suspect]
     Active Substance: BISOPROLOL
     Indication: PRODUCT USED FOR UNKNOWN INDICATION
     Dosage: 2.5 MILLIGRAM, BID (2.5 MG, 1?0?1?0, TABLETTEN)
  6. NITRENDIPIN [Concomitant]
     Active Substance: NITRENDIPINE
     Dosage: 20 MILLIGRAM, BID (20 MG, 1?0?1?0)
  7. SALBUTAMOL [Concomitant]
     Active Substance: ALBUTEROL
     Dosage: UNK UNK, PRN (AS NEEDED)
  8. ASPIRIN. [Concomitant]
     Active Substance: ASPIRIN
     Dosage: 100 MILLIGRAM, QD (100 MG, 1?0?0?0, TABLETTEN)
  9. MOLSIDOMIN [Concomitant]
     Active Substance: MOLSIDOMINE
     Dosage: 8 MILLIGRAM, QD (8 MG, 0?0?1?0)
  10. ISMN [Concomitant]
     Active Substance: ISOSORBIDE MONONITRATE
     Dosage: 40 MILLIGRAM, QD (40 MG, 1?0?0?0)
  11. ACETOLYT                           /01296001/ [Concomitant]
     Active Substance: CALCIUM CITRATE\SODIUM CITRATE
     Dosage: UNK (1 MESSBECHER, 1?0?1?0, GRANULAT)

REACTIONS (3)
  - Intermittent claudication [Unknown]
  - Gait disturbance [Unknown]
  - Condition aggravated [Unknown]
